FAERS Safety Report 5537664-5 (Version None)
Quarter: 2007Q4

REPORT INFORMATION
  Report Type: 
  Country: None (occurrence: None)
  Receive Date: 20071207
  Receipt Date: 20071129
  Transmission Date: 20080405
  Serious: Yes (Hospitalization)
  Sender: FDA-Public Use
  Company Number: ES-AVENTIS-200715781EU

PATIENT
  Age: 92 Year
  Sex: Female

DRUGS (7)
  1. SEGURIL                            /00032601/ [Suspect]
     Dosage: DOSE: UNK
     Dates: start: 20060101
  2. TRIFLUSAL [Suspect]
     Indication: ATRIAL FIBRILLATION
     Dates: start: 20060101
  3. ALPRAZOLAM [Suspect]
     Dates: start: 20060101
  4. NORPRAMIN                          /00661201/ [Suspect]
     Dates: start: 20060101
  5. ATORVASTATIN [Suspect]
     Dates: start: 20060101
  6. DIGOXIN [Suspect]
     Indication: ATRIAL FIBRILLATION
     Dates: start: 20060101
  7. NIMODIPINE [Suspect]
     Dates: start: 20060101

REACTIONS (2)
  - CHOLESTASIS [None]
  - HEPATITIS TOXIC [None]
